FAERS Safety Report 9313574 (Version 1)
Quarter: 2013Q2

REPORT INFORMATION
  Report Type: Spontaneous
  Country: ZA (occurrence: ZA)
  Receive Date: 20130528
  Receipt Date: 20130528
  Transmission Date: 20140414
  Serious: Yes (Death)
  Sender: FDA-Public Use
  Company Number: ZA-ASTRAZENECA-2013SE36047

PATIENT
  Age: 16 Year
  Sex: Female

DRUGS (1)
  1. BUPIVACAINE [Suspect]
     Route: 037

REACTIONS (4)
  - Unresponsive to stimuli [Fatal]
  - Respiratory arrest [Fatal]
  - Pulse absent [Fatal]
  - Hypoxic-ischaemic encephalopathy [Fatal]
